FAERS Safety Report 5345056-7 (Version None)
Quarter: 2007Q2

REPORT INFORMATION
  Report Type: 
  Country: None (occurrence: None)
  Receive Date: 20070426
  Receipt Date: 20060505
  Transmission Date: 20071010
  Serious: Yes (Other)
  Sender: FDA-Public Use
  Company Number: CIP06000844

PATIENT
  Age: 72 Year
  Sex: Female
  Weight: 57.1 kg

DRUGS (7)
  1. MACROBID [Suspect]
     Indication: INFECTION PROPHYLAXIS
     Dosage: 100 MG DAILY, ORAL
     Route: 048
     Dates: start: 20020101, end: 20040801
  2. FOSAMAX [Concomitant]
  3. SYNTHROID [Concomitant]
  4. VAGIFEM [Concomitant]
  5. CALCIUM (CALCIUM) [Concomitant]
  6. MULTI-VIT (VITAMINS NOS) [Concomitant]
  7. VITAMIN B [Concomitant]

REACTIONS (9)
  - AUTOIMMUNE THYROIDITIS [None]
  - CHILLS [None]
  - COUGH [None]
  - ERYTHEMA [None]
  - HEPATIC ENZYME INCREASED [None]
  - INTERSTITIAL LUNG DISEASE [None]
  - LUNG INFILTRATION [None]
  - PNEUMONITIS [None]
  - PYREXIA [None]
